FAERS Safety Report 10484964 (Version 2)
Quarter: 2014Q3

REPORT INFORMATION
  Report Type: Report from Study
  Country: IT (occurrence: IT)
  Receive Date: 20140930
  Receipt Date: 20140930
  Transmission Date: 20150326
  Serious: Yes (Hospitalization, Other)
  Sender: FDA-Public Use
  Company Number: PHHY2014IT030631

PATIENT
  Age: 71 Year
  Sex: Male
  Weight: 71 kg

DRUGS (7)
  1. CERTICAN [Suspect]
     Active Substance: EVEROLIMUS
     Indication: IMMUNOSUPPRESSION
     Dosage: 1.5 MG, UNK
     Route: 048
     Dates: start: 20071215
  2. CERTICAN [Suspect]
     Active Substance: EVEROLIMUS
     Indication: RENAL TRANSPLANT
     Dosage: 2.25 MG, UNK
     Route: 048
     Dates: start: 20100611
  3. OSIPINE [Concomitant]
     Active Substance: BARNIDIPINE HYDROCHLORIDE
     Indication: HYPERTENSION
     Dates: start: 20090506
  4. CERTICAN [Suspect]
     Active Substance: EVEROLIMUS
     Dosage: 1.25 MG, UNK
     Route: 048
     Dates: start: 20140228
  5. PRAVASELECT [Concomitant]
     Indication: DYSLIPIDAEMIA
     Dates: start: 20070918
  6. CERTICAN [Suspect]
     Active Substance: EVEROLIMUS
     Dosage: 1.5 MG, UNK
     Route: 048
     Dates: start: 20140417
  7. ESKIM [Concomitant]
     Active Substance: OMEGA-3 FATTY ACIDS
     Indication: DYSLIPIDAEMIA
     Dosage: UNK UKN, UNK
     Dates: start: 20070719

REACTIONS (9)
  - Escherichia urinary tract infection [Recovered/Resolved with Sequelae]
  - Acute myocardial infarction [Unknown]
  - Hydronephrosis [Recovered/Resolved with Sequelae]
  - Atrial fibrillation [Unknown]
  - Angina pectoris [Unknown]
  - Urosepsis [Unknown]
  - Pyrexia [Recovered/Resolved with Sequelae]
  - Left ventricular dysfunction [Unknown]
  - Ureteric stenosis [Unknown]

NARRATIVE: CASE EVENT DATE: 20140128
